FAERS Safety Report 9796423 (Version 2)
Quarter: 2014Q1

REPORT INFORMATION
  Report Type: Spontaneous
  Country: US (occurrence: US)
  Receive Date: 20140103
  Receipt Date: 20140312
  Transmission Date: 20141002
  Serious: No
  Sender: FDA-Public Use
  Company Number: US-009507513-1312USA010570

PATIENT
  Age: 9 Year
  Sex: Male
  Weight: 30.84 kg

DRUGS (5)
  1. MIRALAX [Suspect]
     Indication: FAECES HARD
     Dosage: 17 G, QD
     Route: 048
     Dates: start: 201307
  2. MIRALAX [Suspect]
     Indication: PRODUCT USED FOR UNKNOWN INDICATION
  3. PROAIR (ALBUTEROL SULFATE) [Concomitant]
     Indication: ASTHMA
     Dosage: UNK, UNKNOWN
  4. SYMBICORT [Concomitant]
     Indication: ASTHMA
     Dosage: UNK, UNKNOWN
  5. ZYRTEC [Concomitant]
     Indication: SEASONAL ALLERGY
     Dosage: UNK, UNKNOWN

REACTIONS (6)
  - Overdose [Unknown]
  - Incorrect drug administration duration [Unknown]
  - Drug administered to patient of inappropriate age [Unknown]
  - Off label use [Unknown]
  - Product odour abnormal [Unknown]
  - Product taste abnormal [Unknown]
